FAERS Safety Report 10581329 (Version 1)
Quarter: 2014Q4

REPORT INFORMATION
  Report Type: Spontaneous
  Country: US (occurrence: US)
  Receive Date: 20141113
  Receipt Date: 20141113
  Transmission Date: 20150529
  Serious: Yes (Hospitalization)
  Sender: FDA-Public Use
  Company Number: US-JNJFOC-20141101456

PATIENT
  Sex: Male

DRUGS (3)
  1. RISPERDAL [Suspect]
     Active Substance: RISPERIDONE
     Indication: BIPOLAR II DISORDER
     Route: 065
     Dates: start: 2014, end: 20141021
  2. CELEXA [Suspect]
     Active Substance: CITALOPRAM HYDROBROMIDE
     Indication: BIPOLAR II DISORDER
     Route: 065
     Dates: start: 2014, end: 20141021
  3. LITHIUM [Suspect]
     Active Substance: LITHIUM CARBONATE
     Indication: BIPOLAR II DISORDER
     Route: 065
     Dates: start: 2014, end: 20141021

REACTIONS (7)
  - Judgement impaired [Recovered/Resolved]
  - Mental impairment [Recovered/Resolved]
  - Alcohol abuse [Recovered/Resolved]
  - Suicidal ideation [Recovered/Resolved]
  - Impaired self-care [Recovered/Resolved]
  - Antisocial behaviour [Recovered/Resolved]
  - Feeling abnormal [Recovered/Resolved]

NARRATIVE: CASE EVENT DATE: 2014
